FAERS Safety Report 5719042-9 (Version None)
Quarter: 2008Q2

REPORT INFORMATION
  Report Type: 
  Country: None (occurrence: None)
  Receive Date: 20080425
  Receipt Date: 20080410
  Transmission Date: 20081010
  Serious: Yes (Death)
  Sender: FDA-Public Use
  Company Number: US-GENENTECH-259974

PATIENT
  Sex: Male

DRUGS (5)
  1. BEVACIZUMAB [Suspect]
     Indication: COLON CANCER
     Dosage: 5 MG/KG, Q2W
     Route: 042
     Dates: start: 20060726
  2. OXALIPLATIN [Suspect]
     Indication: COLON CANCER
     Dosage: 85 MG/M2, DAY 1, Q2W
     Route: 042
     Dates: start: 20060726
  3. LEUCOVORIN CALCIUM [Suspect]
     Indication: COLON CANCER
     Dosage: 400 MG/M2, DAY 1, Q2W
     Route: 042
     Dates: start: 20060726
  4. FLUOROURACIL [Suspect]
     Indication: COLON CANCER
     Dosage: 400 MG/M2, DAY 1, Q2W + MULTIPLE
     Route: 042
     Dates: start: 20060726
  5. LOPRESSOR [Suspect]
     Indication: DRUG USE FOR UNKNOWN INDICATION
     Dates: end: 20060818

REACTIONS (9)
  - ARTERIAL OCCLUSIVE DISEASE [None]
  - ARTERIOSCLEROSIS CORONARY ARTERY [None]
  - CHRONIC OBSTRUCTIVE PULMONARY DISEASE [None]
  - CORONARY ARTERY OCCLUSION [None]
  - GRANULOMA [None]
  - HYPERTENSIVE HEART DISEASE [None]
  - LYMPHADENOPATHY [None]
  - METASTASIS [None]
  - SUDDEN DEATH [None]
